FAERS Safety Report 15210018 (Version 1)
Quarter: 2018Q3

REPORT INFORMATION
  Report Type: Spontaneous
  Country: US (occurrence: US)
  Receive Date: 20180727
  Receipt Date: 20180727
  Transmission Date: 20181010
  Serious: Yes (Hospitalization)
  Sender: FDA-Public Use
  Company Number: US-ACTELION-A-NJ2018-168255

PATIENT
  Age: 9 Year
  Sex: Female

DRUGS (5)
  1. PAMELOR [Concomitant]
     Active Substance: NORTRIPTYLINE HYDROCHLORIDE
     Dosage: 5 ML, QAM AND PM
     Route: 048
     Dates: start: 20180126
  2. ZAVESCA [Suspect]
     Active Substance: MIGLUSTAT
     Indication: NIEMANN-PICK DISEASE
     Dosage: 200 MG, BID
     Route: 048
     Dates: start: 20180130
  3. KEPPRA [Concomitant]
     Active Substance: LEVETIRACETAM
     Dosage: 5 ML, BID
     Route: 048
     Dates: start: 20180126
  4. MUCINEX [Concomitant]
     Active Substance: GUAIFENESIN
     Dosage: 1 DOSE PRN
     Route: 048
  5. LAMOTRIGINE. [Concomitant]
     Active Substance: LAMOTRIGINE
     Dosage: 1 TAB BID
     Route: 048
     Dates: start: 20171211

REACTIONS (2)
  - Gastrointestinal tube insertion [Unknown]
  - Diarrhoea [Unknown]
